FAERS Safety Report 9196777 (Version 2)
Quarter: 2013Q4

REPORT INFORMATION
  Report Type: Spontaneous
  Country: US (occurrence: US)
  Receive Date: 20130328
  Receipt Date: 20131127
  Transmission Date: 20140711
  Serious: Yes (Other)
  Sender: FDA-Public Use
  Company Number: US-BAYER-2013-038298

PATIENT
  Age: 25 Year
  Sex: Female

DRUGS (6)
  1. YAZ [Suspect]
  2. YASMIN [Suspect]
  3. OCELLA [Suspect]
  4. CARAFATE [Concomitant]
     Dosage: 1GM/ 1 FOR [AS WRITTEN] TIMES DAILY
  5. FAMOTIDINE [Concomitant]
     Dosage: 20 MG, HS
  6. HYDROCODONE W/ACETAMINOPHEN [Concomitant]
     Dosage: 5-500 MG 1-2 Q (INTERPRETED AS EVERY) 6HRS PRN (INTERPRETED AS HOURS AS NEEDED).

REACTIONS (5)
  - Gallbladder injury [None]
  - Cholecystitis [None]
  - Injury [None]
  - Pain [None]
  - Pain [None]
